FAERS Safety Report 8609154 (Version 2)
Quarter: 2013Q2

REPORT INFORMATION
  Report Type: Spontaneous
  Country: FR (occurrence: FR)
  Receive Date: 20120611
  Receipt Date: 20130624
  Transmission Date: 20140414
  Serious: Yes (Life-Threatening, Hospitalization)
  Sender: FDA-Public Use
  Company Number: FR-ASTRAZENECA-2012SE37840

PATIENT
  Age: 57 Year
  Sex: Male

DRUGS (10)
  1. CRESTOR [Suspect]
     Route: 048
     Dates: end: 20120404
  2. CUBICIN [Suspect]
     Indication: ENDOCARDITIS STAPHYLOCOCCAL
     Route: 042
     Dates: start: 20120323, end: 20120404
  3. CUBICIN [Suspect]
     Indication: VASCULAR GRAFT
     Route: 042
     Dates: start: 20120323, end: 20120404
  4. INEXIUM [Concomitant]
  5. CARDENSIEL [Concomitant]
  6. KARDEGIC [Concomitant]
  7. STILNOX [Concomitant]
  8. DUROGESIC [Concomitant]
  9. ZYVOXID [Concomitant]
  10. GENTAMYCINE [Concomitant]

REACTIONS (3)
  - Endocarditis staphylococcal [Unknown]
  - Rhabdomyolysis [Recovered/Resolved]
  - Blood creatine phosphokinase increased [Recovered/Resolved]
